FAERS Safety Report 13795151 (Version 4)
Quarter: 2017Q3

REPORT INFORMATION
  Report Type: Spontaneous
  Country: JP (occurrence: JP)
  Receive Date: 20170726
  Receipt Date: 20170919
  Transmission Date: 20171127
  Serious: Yes (Other)
  Sender: FDA-Public Use
  Company Number: JP-009507513-1707JPN001240J

PATIENT
  Age: 53 Year
  Sex: Female
  Weight: 49 kg

DRUGS (9)
  1. CALTAN [Concomitant]
     Active Substance: CALCIUM CARBONATE
     Indication: HYPERPARATHYROIDISM
     Dosage: 1000 MG, BID
     Route: 048
     Dates: start: 20151211
  2. MYSLEE [Concomitant]
     Active Substance: ZOLPIDEM TARTRATE
     Indication: INSOMNIA
     Dosage: 5 MG, QD
     Route: 048
     Dates: start: 20150617, end: 20170628
  3. OXAROL [Concomitant]
     Active Substance: MAXACALCITOL
     Indication: HYPERPARATHYROIDISM
     Dosage: 5 MICROGRAM, TIW
     Route: 042
     Dates: start: 20170412
  4. NESP [Concomitant]
     Active Substance: DARBEPOETIN ALFA
     Indication: NEPHROGENIC ANAEMIA
     Dosage: 10 MG, QW
     Route: 042
     Dates: start: 20170407
  5. BELSOMRA [Suspect]
     Active Substance: SUVOREXANT
     Dosage: 15 MG, QD
     Route: 048
     Dates: start: 201706, end: 20170710
  6. BELSOMRA [Suspect]
     Active Substance: SUVOREXANT
     Indication: INSOMNIA
     Dosage: 15 MG, QD
     Route: 048
     Dates: start: 20170623, end: 20170625
  7. LASIX [Concomitant]
     Active Substance: FUROSEMIDE
     Indication: RENAL FAILURE
     Dosage: 40 MG, QD
     Route: 048
     Dates: start: 20110726
  8. RENAGEL [Concomitant]
     Active Substance: SEVELAMER HYDROCHLORIDE
     Indication: HYPERPARATHYROIDISM
     Dosage: 750 MG, BID
     Route: 048
     Dates: start: 20151009
  9. FESIN [Concomitant]
     Active Substance: IRON SUCROSE
     Indication: IRON DEFICIENCY ANAEMIA
     Dosage: 40 MG, QW
     Route: 042
     Dates: start: 20170517

REACTIONS (4)
  - Anterograde amnesia [Unknown]
  - Underdose [Unknown]
  - Restless legs syndrome [Recovering/Resolving]
  - Somnolence [Recovered/Resolved]

NARRATIVE: CASE EVENT DATE: 20170626
